FAERS Safety Report 24340357 (Version 1)
Quarter: 2024Q3

REPORT INFORMATION
  Report Type: Spontaneous
  Country: US (occurrence: US)
  Receive Date: 20240919
  Receipt Date: 20240919
  Transmission Date: 20241016
  Serious: Yes (Hospitalization)
  Sender: SANOFI AVENTIS
  Company Number: US-SA-2024SA270208

PATIENT
  Age: 77 Year
  Sex: Female

DRUGS (1)
  1. DUPIXENT [Suspect]
     Active Substance: DUPILUMAB
     Indication: Neurodermatitis
     Dosage: 300 MG, QOW
     Route: 058

REACTIONS (11)
  - Urinary tract infection [Unknown]
  - Flank pain [Unknown]
  - Abdominal discomfort [Unknown]
  - Pollakiuria [Not Recovered/Not Resolved]
  - Fungal infection [Unknown]
  - Genital swelling [Unknown]
  - Pruritus genital [Unknown]
  - Dermal cyst [Unknown]
  - Mobility decreased [Unknown]
  - Illness [Unknown]
  - Bladder disorder [Unknown]

NARRATIVE: CASE EVENT DATE: 20240101
